FAERS Safety Report 19237536 (Version 1)
Quarter: 2021Q2

REPORT INFORMATION
  Report Type: Spontaneous
  Country: US (occurrence: US)
  Receive Date: 20210510
  Receipt Date: 20210510
  Transmission Date: 20210717
  Serious: Yes (Other)
  Sender: FDA-Public Use
  Company Number: None

PATIENT
  Age: 66 Year
  Sex: Male

DRUGS (1)
  1. RIBAVIRIN  TAB [Suspect]
     Active Substance: RIBAVIRIN
     Route: 048
     Dates: start: 202103

REACTIONS (3)
  - Product administration error [None]
  - Incorrect dose administered [None]
  - Extra dose administered [None]

NARRATIVE: CASE EVENT DATE: 20210510
